FAERS Safety Report 13199823 (Version 1)
Quarter: 2017Q1

REPORT INFORMATION
  Report Type: Report from Study
  Country: US (occurrence: US)
  Receive Date: 20170208
  Receipt Date: 20170208
  Transmission Date: 20170428
  Serious: No
  Sender: FDA-Public Use
  Company Number: US-AMGEN-USASL2016014978

PATIENT
  Age: 43 Year
  Sex: Female

DRUGS (5)
  1. HERCEPTIN [Suspect]
     Active Substance: TRASTUZUMAB
     Indication: BREAST CANCER
     Dosage: UNK UNK, 1 IN 3 WK
     Route: 042
     Dates: start: 20150916
  2. PERJETA [Suspect]
     Active Substance: PERTUZUMAB
     Indication: BREAST CANCER
     Dosage: UNK UNK, 1 IN 3 WK
     Route: 042
     Dates: start: 20150916
  3. CARBOPLATIN. [Concomitant]
     Active Substance: CARBOPLATIN
     Indication: BREAST CANCER
     Dosage: UNK UNK, 1 IN 3 WK
     Route: 042
     Dates: start: 20150916, end: 20151229
  4. TAXOTERE [Concomitant]
     Active Substance: DOCETAXEL
     Indication: BREAST CANCER
     Dosage: UNK UNK, 1 IN 3 WK
     Route: 042
     Dates: start: 20150916, end: 20151229
  5. NEULASTA [Suspect]
     Active Substance: PEGFILGRASTIM
     Indication: PRODUCT USED FOR UNKNOWN INDICATION
     Dosage: INJECTION EVERY 3 WEEK 1 DAY AFTER CHEMO INFUSION
     Route: 058
     Dates: start: 20150917, end: 20151230

REACTIONS (4)
  - Myalgia [Not Recovered/Not Resolved]
  - Stress [Not Recovered/Not Resolved]
  - Middle insomnia [Not Recovered/Not Resolved]
  - Muscle tightness [Not Recovered/Not Resolved]

NARRATIVE: CASE EVENT DATE: 201509
